FAERS Safety Report 6251303-X (Version None)
Quarter: 2009Q2

REPORT INFORMATION
  Report Type: 
  Country: None (occurrence: None)
  Receive Date: 20090630
  Receipt Date: 20090626
  Transmission Date: 20091009
  Serious: Yes (Death)
  Sender: FDA-Public Use
  Company Number: PHHY2009BR25750

PATIENT
  Sex: Female

DRUGS (4)
  1. EXFORGE [Suspect]
     Dosage: 160/5 MG
  2. DIOVAN HCT [Suspect]
     Dosage: 160/12.5 MG
  3. FORASEQ [Suspect]
     Dosage: 12/200 MCG
  4. FORASEQ [Suspect]
     Dosage: 12/400 MCG

REACTIONS (1)
  - DEATH [None]
